FAERS Safety Report 17404217 (Version 3)
Quarter: 2020Q1

REPORT INFORMATION
  Report Type: Spontaneous
  Country: US (occurrence: US)
  Receive Date: 20200211
  Receipt Date: 20200318
  Transmission Date: 20200409
  Serious: Yes (Hospitalization)
  Sender: FDA-Public Use
  Company Number: US-MALLINCKRODT-T202000115

PATIENT
  Sex: Male
  Weight: 121 kg

DRUGS (1)
  1. H.P. ACTHAR [Suspect]
     Active Substance: CORTICOTROPIN
     Indication: PSORIATIC ARTHROPATHY
     Dosage: 80 UNITS/1ML, TWO TIMES A WEEK
     Route: 030
     Dates: start: 201909

REACTIONS (4)
  - Eczema [Unknown]
  - Peripheral swelling [Unknown]
  - Bronchitis [Unknown]
  - Joint swelling [Unknown]

NARRATIVE: CASE EVENT DATE: 2020
